FAERS Safety Report 21962020 (Version 1)
Quarter: 2023Q1

REPORT INFORMATION
  Report Type: Other
  Country: US (occurrence: None)
  Receive Date: 20230207
  Receipt Date: 20230207
  Transmission Date: 20230417
  Serious: Yes (Other)
  Sender: FDA-Public Use
  Company Number: US-ROCHE-3279147

PATIENT

DRUGS (4)
  1. RITUXIMAB [Suspect]
     Active Substance: RITUXIMAB
     Indication: Diffuse large B-cell lymphoma refractory
     Dosage: ON DAY 8, 15, 22 OF CYCLE 1, DAY 1 OF CYCLE 2-6 AND EVERY OTHER CYCLE FROM CYCLE 8 ONWARDS
     Route: 042
  2. MAGROLIMAB [Suspect]
     Active Substance: MAGROLIMAB
     Indication: Diffuse large B-cell lymphoma refractory
     Dosage: PRIMING DOSE ON CYCLE 1 DAY 1 (C1D1) OF A 28-DAY CYCLE
     Route: 042
  3. MAGROLIMAB [Suspect]
     Active Substance: MAGROLIMAB
     Dosage: THEN 30 MG/KG IV ON D8, D15, AND D22, ON D1, D8, D15, AND D22 OF C2, AND ON D1 AND D15 THEREAFTER
     Route: 042
  4. ACALABRUTINIB [Suspect]
     Active Substance: ACALABRUTINIB
     Indication: Diffuse large B-cell lymphoma refractory
     Route: 048

REACTIONS (1)
  - Pneumonitis [Unknown]
